FAERS Safety Report 6402978-3 (Version None)
Quarter: 2009Q4

REPORT INFORMATION
  Report Type: 
  Country: None (occurrence: None)
  Receive Date: 20091016
  Receipt Date: 20091005
  Transmission Date: 20100525
  Serious: Yes (Death)
  Sender: FDA-Public Use
  Company Number: US-JNJFOC-20090806780

PATIENT
  Sex: Male

DRUGS (6)
  1. REMICADE [Suspect]
     Indication: DRUG USE FOR UNKNOWN INDICATION
     Route: 042
  2. SYNTHROID [Concomitant]
     Indication: HYPOTHYROIDISM
  3. HYDRALAZINE HCL [Concomitant]
     Indication: HYPERTENSION
  4. ASPIRIN [Concomitant]
     Indication: RHEUMATOID ARTHRITIS
  5. LASIX [Concomitant]
     Indication: PLEURAL EFFUSION
  6. FLOMAX [Concomitant]
     Indication: BENIGN PROSTATIC HYPERPLASIA

REACTIONS (1)
  - COLON CANCER METASTATIC [None]
